FAERS Safety Report 6193047-9 (Version None)
Quarter: 2009Q2

REPORT INFORMATION
  Report Type: 
  Country: None (occurrence: None)
  Receive Date: 20090518
  Receipt Date: 20090508
  Transmission Date: 20091009
  Serious: Yes (Other)
  Sender: FDA-Public Use
  Company Number: US-BAYER-200917256NA

PATIENT
  Age: 29 Year
  Sex: Female
  Weight: 66 kg

DRUGS (3)
  1. MAGNEVIST [Suspect]
     Indication: NUCLEAR MAGNETIC RESONANCE IMAGING ABDOMINAL
     Dosage: TOTAL DAILY DOSE: 13 ML  UNIT DOSE: 15 ML
     Route: 042
     Dates: start: 20090306, end: 20090306
  2. LITHIUM [Concomitant]
  3. CLONOPIN [Concomitant]

REACTIONS (5)
  - CONTRAST MEDIA ALLERGY [None]
  - DYSPNOEA [None]
  - EYE PRURITUS [None]
  - EYE SWELLING [None]
  - OCULAR HYPERAEMIA [None]
